FAERS Safety Report 17675775 (Version 1)
Quarter: 2020Q2

REPORT INFORMATION
  Report Type: Spontaneous
  Country: PT (occurrence: PT)
  Receive Date: 20200416
  Receipt Date: 20200416
  Transmission Date: 20200714
  Serious: Yes (Other)
  Sender: FDA-Public Use
  Company Number: PT-ALVOGEN-2020-ALVOGEN-108119

PATIENT
  Age: 72 Year
  Sex: Male

DRUGS (4)
  1. VORICONAZOLE. [Suspect]
     Active Substance: VORICONAZOLE
     Indication: HERPES OPHTHALMIC
     Dosage: UNK
  2. VORICONAZOLE. [Suspect]
     Active Substance: VORICONAZOLE
     Indication: ANTIFUNGAL TREATMENT
  3. POSACONAZOLE [Suspect]
     Active Substance: POSACONAZOLE
     Indication: KERATITIS FUNGAL
     Route: 048
  4. VORICONAZOLE. [Suspect]
     Active Substance: VORICONAZOLE
     Indication: KERATITIS FUNGAL

REACTIONS (3)
  - Encephalopathy [Recovering/Resolving]
  - Hepatitis toxic [Recovered/Resolved]
  - Product use in unapproved indication [Unknown]
